FAERS Safety Report 8333366-0 (Version None)
Quarter: 2012Q1

REPORT INFORMATION
  Report Type: 
  Country: None (occurrence: None)
  Receive Date: 20120327
  Receipt Date: 20110412
  Transmission Date: 20120608
  Serious: Yes (Hospitalization, Other)
  Sender: FDA-Public Use
  Company Number: PHHY2011US30738

PATIENT
  Age: 70 Year
  Sex: Female

DRUGS (1)
  1. GLEEVEC [Suspect]
     Indication: MALIGNANT SOFT TISSUE NEOPLASM
     Dosage: 400 MG, DAILY, ORAL
     Route: 048
     Dates: start: 20110302

REACTIONS (4)
  - FATIGUE [None]
  - ASTHENIA [None]
  - ANAEMIA [None]
  - URINARY TRACT INFECTION [None]
